FAERS Safety Report 10728798 (Version 3)
Quarter: 2015Q3

REPORT INFORMATION
  Report Type: Report from Study
  Country: US (occurrence: US)
  Receive Date: 20150122
  Receipt Date: 20150706
  Transmission Date: 20151125
  Serious: Yes (Other)
  Sender: FDA-Public Use
  Company Number: PHEH2015US001364

PATIENT
  Age: 47 Year
  Sex: Female

DRUGS (4)
  1. VITAMIN D [Concomitant]
     Active Substance: CHOLECALCIFEROL
     Indication: VITAMIN D DEFICIENCY
     Dosage: UNK UNK, QD
     Route: 048
     Dates: start: 20141013
  2. CEPHALEXIN. [Concomitant]
     Active Substance: CEPHALEXIN
     Indication: MALAISE
     Dosage: UNK
     Route: 065
  3. GILENYA [Suspect]
     Active Substance: FINGOLIMOD HYDROCHLORIDE
     Indication: MULTIPLE SCLEROSIS
     Dosage: 0.5 MG, QD
     Route: 048
     Dates: start: 20150109, end: 20150305
  4. XANAX [Concomitant]
     Active Substance: ALPRAZOLAM
     Indication: ANXIETY
     Dosage: UNK UNK, TID
     Route: 048
     Dates: start: 20141013

REACTIONS (21)
  - White blood cell count decreased [Unknown]
  - Blood pressure increased [Recovered/Resolved]
  - Hyperhidrosis [Unknown]
  - Chills [Not Recovered/Not Resolved]
  - Arthralgia [Unknown]
  - Feeling cold [Not Recovered/Not Resolved]
  - Malaise [Unknown]
  - Headache [Not Recovered/Not Resolved]
  - Lymphocyte count decreased [Unknown]
  - Productive cough [Unknown]
  - Drug hypersensitivity [Unknown]
  - Pyrexia [Recovered/Resolved]
  - Neck pain [Not Recovered/Not Resolved]
  - Cardiac disorder [Unknown]
  - Sinusitis [Unknown]
  - Cough [Unknown]
  - Chest pain [Not Recovered/Not Resolved]
  - Sleep disorder [Unknown]
  - Paranasal sinus discomfort [Unknown]
  - Immunodeficiency [Unknown]
  - Fatigue [Unknown]

NARRATIVE: CASE EVENT DATE: 20150112
